FAERS Safety Report 21206549 (Version 3)
Quarter: 2022Q4

REPORT INFORMATION
  Report Type: Spontaneous
  Country: US (occurrence: US)
  Receive Date: 20220812
  Receipt Date: 20221007
  Transmission Date: 20230113
  Serious: Yes (Hospitalization, Other)
  Sender: FDA-Public Use
  Company Number: US-PFIZER INC-PV202200041267

PATIENT
  Age: 43 Year
  Sex: Male

DRUGS (2)
  1. INLYTA [Suspect]
     Active Substance: AXITINIB
     Dosage: 5 MG
  2. INLYTA [Suspect]
     Active Substance: AXITINIB
     Dosage: 1 TABLET DAILY

REACTIONS (4)
  - Pneumonia [Unknown]
  - Platelet count decreased [Unknown]
  - Asthenia [Unknown]
  - Hypotension [Unknown]
